FAERS Safety Report 5622413-2 (Version None)
Quarter: 2008Q1

REPORT INFORMATION
  Report Type: 
  Country: None (occurrence: None)
  Receive Date: 20080211
  Receipt Date: 20080130
  Transmission Date: 20080703
  Serious: Yes (Death, Hospitalization)
  Sender: FDA-Public Use
  Company Number: GB-PFIZER INC-2008006159

PATIENT
  Sex: Male
  Weight: 74 kg

DRUGS (3)
  1. VFEND [Suspect]
     Indication: ANTIFUNGAL PROPHYLAXIS
  2. AMBISOME [Concomitant]
  3. CASPOFUNGIN [Concomitant]

REACTIONS (2)
  - FEBRILE NEUTROPENIA [None]
  - FUSARIUM INFECTION [None]
